FAERS Safety Report 11025562 (Version 1)
Quarter: 2015Q2

REPORT INFORMATION
  Report Type: Spontaneous
  Country: US (occurrence: US)
  Receive Date: 20150414
  Receipt Date: 20150414
  Transmission Date: 20150821
  Serious: No
  Sender: FDA-Public Use
  Company Number: US-PFIZER INC-2015120835

PATIENT
  Sex: Female

DRUGS (2)
  1. ADVIL [Suspect]
     Active Substance: IBUPROFEN
     Indication: MALAISE
     Dosage: ABOUT 4 DAILY
  2. ADVIL [Suspect]
     Active Substance: IBUPROFEN
     Indication: PYREXIA

REACTIONS (6)
  - Ocular hyperaemia [Unknown]
  - Pyrexia [Unknown]
  - Oropharyngeal pain [Recovering/Resolving]
  - Pharyngeal erythema [Recovering/Resolving]
  - Malaise [Unknown]
  - Sinusitis [Recovering/Resolving]
